FAERS Safety Report 15832275 (Version 1)
Quarter: 2018Q4

REPORT INFORMATION
  Report Type: Spontaneous
  Country: US (occurrence: US)
  Receive Date: 20181218
  Receipt Date: 20181218
  Transmission Date: 20190205
  Serious: No
  Sender: FDA-Public Use
  Company Number: None

PATIENT
  Age: 72 Year
  Sex: Female

DRUGS (16)
  1. GABAPENTIN. [Concomitant]
     Active Substance: GABAPENTIN
  2. LANTUS [Concomitant]
     Active Substance: INSULIN GLARGINE
  3. METOPROLOL TARTRATE. [Concomitant]
     Active Substance: METOPROLOL TARTRATE
  4. URSODIOL. [Concomitant]
     Active Substance: URSODIOL
  5. VITAMIN B [Concomitant]
     Active Substance: VITAMIN B
  6. MELATONIN [Concomitant]
     Active Substance: MELATONIN
  7. TURMERIC [Concomitant]
     Active Substance: HERBALS\TURMERIC
  8. LINZESS [Concomitant]
     Active Substance: LINACLOTIDE
  9. METFORMIN [Concomitant]
     Active Substance: METFORMIN HYDROCHLORIDE
  10. BUPROPION. [Concomitant]
     Active Substance: BUPROPION
  11. VICTOZA [Concomitant]
     Active Substance: LIRAGLUTIDE
  12. CRESTOR [Concomitant]
     Active Substance: ROSUVASTATIN CALCIUM
  13. LYRICA [Concomitant]
     Active Substance: PREGABALIN
  14. OCALIVA [Suspect]
     Active Substance: OBETICHOLIC ACID
     Indication: PRIMARY BILIARY CHOLANGITIS
     Route: 048
     Dates: start: 20160810
  15. BEICAR [Concomitant]
  16. XANAX [Concomitant]
     Active Substance: ALPRAZOLAM

REACTIONS (1)
  - Alopecia [None]

NARRATIVE: CASE EVENT DATE: 20160810
